FAERS Safety Report 9251831 (Version 12)
Quarter: 2014Q2

REPORT INFORMATION
  Report Type: Report from Study
  Country: AU (occurrence: AU)
  Receive Date: 20130424
  Receipt Date: 20140401
  Transmission Date: 20141212
  Serious: Yes (Hospitalization)
  Sender: FDA-Public Use
  Company Number: AU-PFIZER INC-2013125013

PATIENT
  Age: 51 Year
  Sex: Female
  Weight: 46 kg

DRUGS (19)
  1. GDC-0449 [Suspect]
     Indication: BASAL CELL CARCINOMA
     Dosage: 150 MG, DAILY
     Route: 048
     Dates: start: 20120824
  2. GABAPENTIN [Concomitant]
     Indication: PAIN
     Dosage: 600 MG, 2X/DAY
     Route: 065
     Dates: start: 200801
  3. FENTANYL CITRATE [Concomitant]
     Indication: PAIN
     Dosage: 150 UG, EVERY 3 DAYS
     Route: 062
     Dates: start: 200801, end: 20121201
  4. FENTANYL CITRATE [Concomitant]
     Dosage: 100 UG, EVERY 3 DAYS
     Route: 062
     Dates: start: 20121201, end: 20130405
  5. FENTANYL CITRATE [Concomitant]
     Dosage: 150 UG, EVERY 3 DAYS
     Route: 065
     Dates: start: 20130405, end: 201304
  6. FENTANYL CITRATE [Concomitant]
     Dosage: 150 UG, UNK
     Route: 062
     Dates: start: 20130419, end: 20130728
  7. ORDINE [Concomitant]
     Indication: PAIN
     Dosage: 40 MG, AS NEEDED
     Route: 065
     Dates: start: 201201
  8. VALIUM [Concomitant]
     Indication: DEPRESSION
     Dosage: 5 MG, 2X/DAY
     Route: 065
     Dates: start: 201205
  9. LEXAPRO [Concomitant]
     Indication: DEPRESSION
     Dosage: 20 MG, 2X/DAY
     Route: 065
     Dates: start: 201001, end: 20120922
  10. BACLOFEN [Concomitant]
     Indication: MUSCLE SPASMS
     Dosage: 10 MG, 2X/DAY
     Dates: start: 20121214
  11. ROGAINE [Concomitant]
     Indication: ALOPECIA
     Dosage: 5 %, UNK
     Route: 061
     Dates: start: 20121214
  12. COLOXYL [Concomitant]
     Indication: CONSTIPATION
     Dosage: UNK, AT NIGHT
     Dates: start: 20130419
  13. MOVICOL [Concomitant]
     Indication: CONSTIPATION
     Dosage: UNK
  14. DIPHENHYDRAMINE [Concomitant]
     Indication: PHARYNGITIS
     Dosage: UNK
  15. SODIUM CHLORIDE [Concomitant]
     Indication: HYPOTENSION
     Dosage: 6 L (0.9%), UNK
     Route: 042
     Dates: start: 20130910, end: 20130912
  16. XYLOCAINE [Concomitant]
     Indication: OROPHARYNGEAL PAIN
     Dosage: 10 MG, EVERY 3 HOURS AS NEEDED
     Dates: start: 20130910, end: 20130912
  17. XYLOCAINE [Concomitant]
     Indication: PHARYNGITIS
  18. OMEPRAZOLE [Concomitant]
     Indication: GASTROOESOPHAGEAL REFLUX DISEASE
     Dosage: 20 MG, UNK
     Dates: start: 20130708, end: 20130729
  19. PRISTIQ [Suspect]
     Indication: DEPRESSION
     Dosage: 50 MG, DAILY
     Route: 065
     Dates: start: 20120922, end: 2012

REACTIONS (2)
  - Dehydration [Recovered/Resolved]
  - Hypotension [Recovered/Resolved]
